FAERS Safety Report 5297381-6 (Version None)
Quarter: 2007Q2

REPORT INFORMATION
  Report Type: 
  Country: None (occurrence: None)
  Receive Date: 20070416
  Receipt Date: 20070402
  Transmission Date: 20071010
  Serious: Yes (Other)
  Sender: FDA-Public Use
  Company Number: PHNU2007DE00934

PATIENT
  Sex: Male

DRUGS (15)
  1. TRILEPTAL [Suspect]
     Indication: EPILEPSY
     Dosage: 600 MG/D
     Route: 048
     Dates: start: 20040301
  2. PANTOZOL [Concomitant]
  3. ALENDRONIC ACID [Concomitant]
     Dosage: 1 DF, QW
  4. CALCIUM ^VERLA^ [Concomitant]
     Dosage: 0.5 DF, BID
  5. THEOPHYLLIN RETARD-RATIOPHARM [Concomitant]
     Dosage: 1 DF, QD
  6. VALSARTAN AND HYDROCHLOROTHIAZIDE [Concomitant]
     Dosage: 1 DF, QD
  7. XIPAMIDE [Concomitant]
     Dosage: 0.5 DF, UNK
  8. CARVEDILOL [Concomitant]
     Dosage: 0.5 DF, QD
  9. PREDNISOLONE [Concomitant]
     Dosage: 2 DF, QD2SDO
  10. PREDNI-H-TABLINEN [Concomitant]
     Dosage: 0.5 MG, QD
  11. MOXONIDINE [Concomitant]
     Dosage: 1 DF, QD
  12. SIMVASTATIN [Concomitant]
     Dosage: 0.5 MG, QD
  13. ACTRAPID HUMAN [Concomitant]
     Indication: DIABETES MELLITUS
  14. NOVORAPID [Concomitant]
     Indication: DIABETES MELLITUS
  15. PROTAPHAN [Concomitant]
     Indication: DIABETES MELLITUS

REACTIONS (5)
  - ABNORMAL BEHAVIOUR [None]
  - NERVOUS SYSTEM DISORDER [None]
  - PERSONALITY DISORDER [None]
  - SUICIDAL BEHAVIOUR [None]
  - SUICIDAL IDEATION [None]
